FAERS Safety Report 4455325-0 (Version None)
Quarter: 2004Q3

REPORT INFORMATION
  Report Type: 
  Country: None (occurrence: None)
  Receive Date: 20040825
  Receipt Date: 20040617
  Transmission Date: 20050211
  Serious: No
  Sender: FDA-Public Use
  Company Number: 207274

PATIENT
  Age: 50 Year
  Sex: Male
  Weight: 61 kg

DRUGS (1)
  1. RAPTIVA [Suspect]
     Indication: PSORIASIS
     Dosage: 60 MG,1/WEEK,SUBCUTANEOUS
     Route: 058
     Dates: start: 20040418

REACTIONS (1)
  - WHITE BLOOD CELL COUNT INCREASED [None]
